FAERS Safety Report 5091741-4 (Version None)
Quarter: 2006Q3

REPORT INFORMATION
  Report Type: 
  Country: None (occurrence: None)
  Receive Date: 20060829
  Receipt Date: 20060501
  Transmission Date: 20061208
  Serious: Yes (Other)
  Sender: FDA-Public Use
  Company Number: US-BRISTOL-MYERS SQUIBB COMPANY-13362371

PATIENT
  Age: 53 Year
  Sex: Female
  Weight: 61 kg

DRUGS (1)
  1. ERBITUX [Suspect]
     Indication: COLORECTAL CANCER METASTATIC
     Dosage: RECEIVED X 8 WEEKS LAST YEAR, WHICH ENDED IN MARCH 2005/RE-STARTED WEEKLY ON 20-APR-2006
     Route: 042
     Dates: start: 20050101

REACTIONS (6)
  - BLOOD MAGNESIUM DECREASED [None]
  - CHILLS [None]
  - HEADACHE [None]
  - PYREXIA [None]
  - RASH [None]
  - VOMITING [None]
